FAERS Safety Report 10008751 (Version 1)
Quarter: 2014Q1

REPORT INFORMATION
  Report Type: Spontaneous
  Country: US (occurrence: US)
  Receive Date: 20140312
  Receipt Date: 20140312
  Transmission Date: 20141002
  Serious: No
  Sender: FDA-Public Use
  Company Number: US-INCYTE CORPORATION-2012IN000599

PATIENT
  Sex: Male

DRUGS (7)
  1. JAKAFI [Suspect]
     Indication: MYELOFIBROSIS
     Dosage: 10 MG, BID
     Route: 048
  2. PROCRIT [Concomitant]
     Dosage: UNK
  3. ANTIDEPRESSANTS [Concomitant]
     Dosage: UNK
  4. ANTIANXIETY MEDICATIONS [Concomitant]
     Dosage: UNK
  5. CHOLESTEROL- AND TRIGLYCERIDE REDUCERS [Concomitant]
     Dosage: UNK
  6. HEART MEDICATIONS [Concomitant]
     Dosage: UNK
  7. FISH OIL [Concomitant]

REACTIONS (1)
  - Fatigue [Unknown]
